FAERS Safety Report 23102413 (Version 1)
Quarter: 2023Q4

REPORT INFORMATION
  Report Type: Spontaneous
  Country: JP (occurrence: JP)
  Receive Date: 20231025
  Receipt Date: 20231025
  Transmission Date: 20240110
  Serious: Yes (Hospitalization)
  Sender: FDA-Public Use
  Company Number: JP-PFIZER INC-PV202300171626

PATIENT
  Age: 86 Year
  Sex: Female

DRUGS (1)
  1. ENBREL [Suspect]
     Active Substance: ETANERCEPT
     Indication: Rheumatoid vasculitis
     Dosage: 25 MG, ONCE EVERY 2 WEEKS
     Route: 058

REACTIONS (2)
  - Off label use [Unknown]
  - Herpes zoster [Not Recovered/Not Resolved]
